FAERS Safety Report 13527423 (Version 2)
Quarter: 2017Q2

REPORT INFORMATION
  Report Type: Spontaneous
  Country: US (occurrence: US)
  Receive Date: 20170509
  Receipt Date: 20170526
  Transmission Date: 20170830
  Serious: Yes (Other)
  Sender: FDA-Public Use
  Company Number: US-PFIZER INC-2017197011

PATIENT
  Sex: Male

DRUGS (1)
  1. XELJANZ [Suspect]
     Active Substance: TOFACITINIB CITRATE
     Dosage: 5 MG, 2X/DAY
     Route: 048

REACTIONS (11)
  - Joint dislocation [Unknown]
  - Compression fracture [Unknown]
  - Muscle atrophy [Unknown]
  - Condition aggravated [Recovering/Resolving]
  - Back pain [Unknown]
  - Osteoarthritis [Unknown]
  - Kyphosis [Unknown]
  - Nodal osteoarthritis [Unknown]
  - Synovitis [Unknown]
  - Hypotonia [Unknown]
  - Joint range of motion decreased [Unknown]
